FAERS Safety Report 14398720 (Version 2)
Quarter: 2018Q1

REPORT INFORMATION
  Report Type: Spontaneous
  Country: DE (occurrence: DE)
  Receive Date: 20180117
  Receipt Date: 20180306
  Transmission Date: 20180509
  Serious: Yes (Other)
  Sender: FDA-Public Use
  Company Number: DE-OCTA-WIL00118DE

PATIENT
  Age: 32 Year
  Sex: Female
  Weight: 60 kg

DRUGS (1)
  1. WILATE - VON WILLEBRAND FACTOR/COAGULATION FACTOR VIII COMPLEX (HUMAN) [Suspect]
     Active Substance: HUMAN COAGULATION FACTOR VIII/VON WILLEBRAND FACTOR COMPLEX
     Indication: HAEMORRHAGE
     Dosage: 33 IU/KG
     Route: 042
     Dates: start: 20180104, end: 20180104

REACTIONS (6)
  - Hypoaesthesia [Recovered/Resolved]
  - Cardiovascular disorder [Recovered/Resolved]
  - Maternal exposure during pregnancy [Unknown]
  - Flushing [Recovered/Resolved]
  - Illusion [Recovered/Resolved]
  - Chest discomfort [Recovered/Resolved]

NARRATIVE: CASE EVENT DATE: 20180104
